FAERS Safety Report 21255011 (Version 3)
Quarter: 2023Q1

REPORT INFORMATION
  Report Type: Spontaneous
  Country: PT (occurrence: PT)
  Receive Date: 20220825
  Receipt Date: 20230207
  Transmission Date: 20230418
  Serious: Yes (Other)
  Sender: FDA-Public Use
  Company Number: None

PATIENT
  Age: 82 Year
  Sex: Male
  Weight: 79 kg

DRUGS (23)
  1. SPIRONOLACTONE [Suspect]
     Active Substance: SPIRONOLACTONE
     Indication: Cardiac failure
     Dosage: 37.5 MILLIGRAM, QD, 1 TABLET ON AN EMPTY STOMACH
     Route: 048
     Dates: start: 20220317, end: 20220420
  2. SPIRONOLACTONE [Suspect]
     Active Substance: SPIRONOLACTONE
     Dosage: 25 MILLIGRAM, QD, 1 TABLET ON AN EMPTY STOMACH
     Route: 048
     Dates: end: 20220317
  3. SPIRONOLACTONE [Suspect]
     Active Substance: SPIRONOLACTONE
     Dosage: UNK, 1 TABLET ON AN EMPTY STOMACH
     Route: 048
     Dates: start: 20220509
  4. VELTASSA [Suspect]
     Active Substance: PATIROMER
     Indication: Hyperkalaemia
     Dosage: 16.8 GRAM, QD, 16,8G / DAY (2 SACHETS OF 8.4G)
     Route: 048
     Dates: start: 20220225, end: 20220420
  5. VELTASSA [Suspect]
     Active Substance: PATIROMER
     Dosage: 25.2 GRAM, QD, 25.2 G/ DAY (3 SACHETS OF 8.4G)
     Route: 048
     Dates: start: 20201203, end: 20220225
  6. FUROSEMIDE [Suspect]
     Active Substance: FUROSEMIDE
     Indication: Cardiac failure
     Dosage: 1 TABLET ON AN EMPTY STOMACH
     Route: 048
     Dates: end: 20220420
  7. FUROSEMIDE [Suspect]
     Active Substance: FUROSEMIDE
     Dosage: 40 MILLIGRAM, QD 24 HOURS  1 TABLET ON AN EMPTY STOMACH
     Route: 048
     Dates: start: 20220509
  8. INVOKANA [Concomitant]
     Active Substance: CANAGLIFLOZIN
     Dosage: 100 MILLIGRAM, QD, 1 TABLET AT BREAKFAST
     Route: 048
  9. PRAVASTATIN SODIUM [Concomitant]
     Active Substance: PRAVASTATIN SODIUM
     Dosage: 20 MILLIGRAM, QD, 1 TABLET AT DINNER
     Route: 048
  10. TROMALYT [Concomitant]
     Active Substance: ASPIRIN
     Dosage: 150 MILLIGRAM, QD, 1 CAPSULE AT BREAKFAST
     Route: 048
  11. CALCIUM\POLYSTYRENE [Concomitant]
     Active Substance: CALCIUM\POLYSTYRENE
     Dosage: DOSE INCREASED AT 9/5/22 TO 1 SCOOP 3 TIMES DAILY
     Route: 048
  12. INSULINA HUMALOG [Concomitant]
     Dosage: UNK, ACCORDING TO BLOOD GLUCOSE
     Route: 058
  13. ENTRESTO [Concomitant]
     Active Substance: SACUBITRIL\VALSARTAN
     Dosage: 1 ARB UNIT BID,1 TAB AT BREAKFAST+1 TAB AT DINNER
     Route: 048
  14. DOLUTEGRAVIR [Concomitant]
     Active Substance: DOLUTEGRAVIR
     Dosage: 50 MILLIGRAM, QD, 1 TABLET AT BREAKFAST
     Route: 048
  15. LERCANIDIPINE [Concomitant]
     Active Substance: LERCANIDIPINE
     Dosage: 10 MILLIGRAM, QD, 1 TABLET AT DINNER
     Route: 048
  16. BISOPROLOL [Concomitant]
     Active Substance: BISOPROLOL
     Dosage: 5 MILLIGRAM, QD, 1 TABLET AT BREAKFAST
     Route: 048
  17. TRAZODONE HYDROCHLORIDE [Concomitant]
     Active Substance: TRAZODONE HYDROCHLORIDE
     Dosage: 150 MILLIGRAM, QD, 1 TABLET BEFORE BEDTIME
     Route: 048
  18. LANTUS [Concomitant]
     Active Substance: INSULIN GLARGINE
     Dosage: 12 INTERNATIONAL UNIT, QD, 12 UNITS AT BEDTIME
     Route: 058
  19. LANTUS [Concomitant]
     Active Substance: INSULIN GLARGINE
     Dosage: 30 INTERNATIONAL UNIT, QD, 30 UNITS ON AN EMPTY STOMACH
     Route: 058
  20. OMEPRAZOLE [Concomitant]
     Active Substance: OMEPRAZOLE
     Dosage: 20 MILLIGRAM, QD, 1CAPSULE ON AN EMPTY STOMACH
     Route: 048
  21. CALCIUM CARBONATE [Concomitant]
     Active Substance: CALCIUM CARBONATE
     Dosage: UNK, 1 TABLET AT BREAKFAST
     Route: 048
  22. LAMIVUDINE [Concomitant]
     Active Substance: LAMIVUDINE
     Dosage: 150 MILLIGRAM, QD, 1 TABLET AT BREAKFAST
     Route: 048
  23. ALLOPURINOL [Concomitant]
     Active Substance: ALLOPURINOL
     Dosage: 50 MILLIGRAM, QD, HALF A TABLET AT BREAKFAST
     Route: 048

REACTIONS (4)
  - Metabolic acidosis [Recovered/Resolved]
  - Drug ineffective [Unknown]
  - Acute kidney injury [Not Recovered/Not Resolved]
  - Hyperkalaemia [Unknown]

NARRATIVE: CASE EVENT DATE: 20220225
